FAERS Safety Report 5522584-2 (Version None)
Quarter: 2007Q4

REPORT INFORMATION
  Report Type: 
  Country: None (occurrence: None)
  Receive Date: 20071120
  Receipt Date: 20071108
  Transmission Date: 20080405
  Serious: Yes (Other)
  Sender: FDA-Public Use
  Company Number: JP-PFIZER INC-2007094623

PATIENT
  Age: 87 Year
  Sex: Male

DRUGS (3)
  1. ZITHROMAX [Suspect]
     Indication: PYREXIA
  2. ROCEPHIN [Concomitant]
  3. OTHER BETA-LACTAM ANTIBACTERIALS [Concomitant]

REACTIONS (1)
  - THROMBOTIC THROMBOCYTOPENIC PURPURA [None]
